FAERS Safety Report 9907956 (Version 1)
Quarter: 2014Q1

REPORT INFORMATION
  Report Type: Report from Study
  Country: US (occurrence: US)
  Receive Date: 20140219
  Receipt Date: 20140219
  Transmission Date: 20141002
  Serious: Yes (Other)
  Sender: FDA-Public Use
  Company Number: US-ROCHE-1348184

PATIENT
  Sex: Female

DRUGS (4)
  1. AVASTIN [Suspect]
     Indication: AGE-RELATED MACULAR DEGENERATION
     Dosage: 0.05CC (25MG PER ML)
     Route: 050
  2. LUCENTIS [Suspect]
     Indication: AGE-RELATED MACULAR DEGENERATION
     Route: 050
  3. IQUIX [Concomitant]
     Dosage: EYE DROPS OU TID INSTILL IN EYES
     Route: 047
  4. LOTREL [Concomitant]
     Dosage: CAP
     Route: 065

REACTIONS (5)
  - Neoplasm malignant [Unknown]
  - Hypertension [Unknown]
  - Off label use [Unknown]
  - Vision blurred [Unknown]
  - Visual acuity reduced [Unknown]
